FAERS Safety Report 8161346-7 (Version None)
Quarter: 2012Q1

REPORT INFORMATION
  Report Type: 
  Country: None (occurrence: None)
  Receive Date: 20120224
  Receipt Date: 20120214
  Transmission Date: 20120608
  Serious: Yes (Hospitalization)
  Sender: FDA-Public Use
  Company Number: BE-JNJFOC-20120206617

PATIENT
  Sex: Female
  Weight: 88.5 kg

DRUGS (4)
  1. PALIPERIDONE PALMITATE [Suspect]
     Indication: PRODUCT USED FOR UNKNOWN INDICATION
     Route: 030
     Dates: start: 20111104
  2. PALIPERIDONE PALMITATE [Suspect]
     Route: 030
     Dates: start: 20111231
  3. DEPO-PROVERA [Concomitant]
     Indication: CONTRACEPTION
     Dates: start: 20111008
  4. MEDROL [Concomitant]
     Indication: CHRONIC OBSTRUCTIVE PULMONARY DISEASE
     Dates: start: 20100101

REACTIONS (1)
  - DELUSION [None]
